FAERS Safety Report 7465773-2 (Version None)
Quarter: 2011Q2

REPORT INFORMATION
  Report Type: 
  Country: None (occurrence: None)
  Receive Date: 20110428
  Receipt Date: 20110412
  Transmission Date: 20111010
  Serious: Yes (Other)
  Sender: FDA-Public Use
  Company Number: 2011AP000727

PATIENT
  Age: 55 Year
  Sex: Female

DRUGS (1)
  1. LATANOPROST [Suspect]
     Indication: GLAUCOMA
     Dosage: 1 GTT, QD, OPH
     Route: 047
     Dates: start: 20110404, end: 20110406

REACTIONS (3)
  - SWELLING FACE [None]
  - RASH [None]
  - EYE SWELLING [None]
